FAERS Safety Report 11755131 (Version 1)
Quarter: 2015Q4

REPORT INFORMATION
  Report Type: Spontaneous
  Country: FR (occurrence: FR)
  Receive Date: 20151119
  Receipt Date: 20151119
  Transmission Date: 20160304
  Serious: Yes (Life-Threatening, Hospitalization)
  Sender: FDA-Public Use
  Company Number: FR-PFIZER INC-FR-WYE-G02141108

PATIENT
  Age: 64 Year
  Sex: Male

DRUGS (8)
  1. ADVIL [Suspect]
     Active Substance: IBUPROFEN
     Indication: TOOTHACHE
     Dosage: 1 DF, SINGLE
     Route: 048
     Dates: start: 20080626, end: 20080626
  2. FLAGYL [Suspect]
     Active Substance: METRONIDAZOLE\METRONIDAZOLE HYDROCHLORIDE
     Indication: TOOTHACHE
     Dosage: 1 DF, SINGLE
     Route: 048
     Dates: start: 20080626, end: 20080626
  3. SERETIDE [Concomitant]
     Active Substance: FLUTICASONE FUROATE\SALMETEROL XINAFOATE
     Route: 048
  4. ASPEGIC [Concomitant]
     Active Substance: ASPIRIN DL-LYSINE
     Route: 048
  5. ATENOLOL. [Concomitant]
     Active Substance: ATENOLOL
     Route: 048
  6. SIMVASTATIN. [Concomitant]
     Active Substance: SIMVASTATIN
     Route: 048
  7. CLAMOXYL /00249601/ [Suspect]
     Active Substance: AMOXICILLIN
     Indication: TOOTHACHE
     Dosage: 1 DF, SINGLE
     Route: 048
     Dates: start: 20080626, end: 20080626
  8. COVERSYL /00790702/ [Concomitant]
     Active Substance: PERINDOPRIL
     Route: 048

REACTIONS (3)
  - Anaphylactic shock [Recovered/Resolved]
  - Electrocardiogram ST segment elevation [Recovered/Resolved]
  - Chest discomfort [Recovered/Resolved]

NARRATIVE: CASE EVENT DATE: 20080626
